FAERS Safety Report 4757750-7 (Version None)
Quarter: 2005Q3

REPORT INFORMATION
  Report Type: 
  Country: None (occurrence: None)
  Receive Date: 20050831
  Receipt Date: 20050727
  Transmission Date: 20060218
  Serious: Yes (Other)
  Sender: FDA-Public Use
  Company Number: PHNU2005DE02712

PATIENT
  Age: 66 Year
  Sex: Female

DRUGS (6)
  1. ZOMETA [Suspect]
     Indication: METASTASES TO BONE
     Dosage: 4 MG, QMO
     Route: 042
     Dates: start: 20020201, end: 20050509
  2. AREDIA [Suspect]
     Indication: METASTASES TO BONE
     Dosage: 60 MG, QMO
     Route: 042
     Dates: start: 20010101, end: 20020201
  3. FEMARA [Concomitant]
     Indication: BREAST CANCER
     Dosage: 2.5 MG, UNK
     Route: 048
     Dates: start: 20020101
  4. TAMOXIFEN CITRATE [Concomitant]
     Dosage: 20 MG, QD
     Route: 048
     Dates: start: 19970101, end: 20020101
  5. VITAMIN D3 [Concomitant]
     Dosage: 1000 IU, QW2
     Route: 065
  6. VITAMIN K1 [Concomitant]
     Dosage: 3 UNK, QD
     Route: 065

REACTIONS (4)
  - ASEPTIC NECROSIS BONE [None]
  - DENTAL TREATMENT [None]
  - IMPAIRED HEALING [None]
  - TOOTH EXTRACTION [None]
